FAERS Safety Report 11551213 (Version 1)
Quarter: 2015Q3

REPORT INFORMATION
  Report Type: Spontaneous
  Country: US (occurrence: US)
  Receive Date: 20150903
  Receipt Date: 20150903
  Transmission Date: 20151125
  Serious: No
  Sender: FDA-Public Use
  Company Number: US-ELI_LILLY_AND_COMPANY-US201209003949

PATIENT
  Age: 76 Year
  Sex: Male

DRUGS (3)
  1. HUMALOG MIX75/25 [Suspect]
     Active Substance: INSULIN LISPRO
     Dosage: UNK, BID
  2. HUMALOG MIX75/25 [Suspect]
     Active Substance: INSULIN LISPRO
     Dosage: UNK, BID
  3. HUMALOG MIX75/25 [Suspect]
     Active Substance: INSULIN LISPRO
     Indication: DIABETES MELLITUS
     Dosage: UNK, BID

REACTIONS (2)
  - Drug dose omission [Unknown]
  - Underdose [Unknown]

NARRATIVE: CASE EVENT DATE: 20120830
